FAERS Safety Report 10577986 (Version 4)
Quarter: 2015Q1

REPORT INFORMATION
  Report Type: Report from Study
  Country: US (occurrence: US)
  Receive Date: 20141112
  Receipt Date: 20150311
  Transmission Date: 20150720
  Serious: No
  Sender: FDA-Public Use
  Company Number: US-AMGEN-USASL2014085262

PATIENT
  Age: 5 Year
  Sex: Female

DRUGS (2)
  1. ENBREL [Suspect]
     Active Substance: ETANERCEPT
     Dosage: UNK UNK, QWK
     Route: 065
     Dates: start: 20140606
  2. ENBREL [Suspect]
     Active Substance: ETANERCEPT
     Indication: JUVENILE IDIOPATHIC ARTHRITIS
     Dosage: 16.25 MG, QWK
     Route: 065
     Dates: start: 20140606

REACTIONS (10)
  - Anxiety [Not Recovered/Not Resolved]
  - Injection site injury [Recovered/Resolved]
  - Malaise [Recovered/Resolved]
  - Injection site vesicles [Recovered/Resolved]
  - Injection site swelling [Recovered/Resolved]
  - Cough [Recovered/Resolved]
  - Headache [Not Recovered/Not Resolved]
  - Injection site haemorrhage [Recovered/Resolved]
  - Abdominal discomfort [Recovered/Resolved]
  - Pharyngitis streptococcal [Recovered/Resolved]

NARRATIVE: CASE EVENT DATE: 2014
